FAERS Safety Report 6911702-7 (Version None)
Quarter: 2010Q3

REPORT INFORMATION
  Report Type: 
  Country: None (occurrence: None)
  Receive Date: 20100806
  Receipt Date: 20100730
  Transmission Date: 20110219
  Serious: Yes (Hospitalization)
  Sender: FDA-Public Use
  Company Number: FR-BAYER-201034609GPV

PATIENT
  Age: 77 Year
  Sex: Male

DRUGS (10)
  1. CIFLOX [Suspect]
     Indication: ERYSIPELAS
     Route: 048
     Dates: start: 20100401, end: 20100401
  2. VANCOMYCIN [Suspect]
     Indication: ERYSIPELAS
     Route: 042
     Dates: start: 20100401, end: 20100401
  3. ORBENIN CAP [Suspect]
     Indication: ERYSIPELAS
     Route: 048
     Dates: start: 20100401, end: 20100401
  4. LOVENOX [Concomitant]
  5. ACETAMINOPHEN [Concomitant]
  6. LASIX [Concomitant]
  7. DIFFU K [Concomitant]
  8. CAPTOPRIL [Concomitant]
  9. HYDROCHLOROTHIAZIDE [Concomitant]
  10. FENOFIBRATE [Concomitant]

REACTIONS (2)
  - DRUG RASH WITH EOSINOPHILIA AND SYSTEMIC SYMPTOMS [None]
  - TOXIC SKIN ERUPTION [None]
